FAERS Safety Report 20847960 (Version 2)
Quarter: 2022Q2

REPORT INFORMATION
  Report Type: Other
  Country: US (occurrence: None)
  Receive Date: 20220519
  Receipt Date: 20220526
  Transmission Date: 20220721
  Serious: Yes (Hospitalization)
  Sender: FDA-Public Use
  Company Number: US-ROCHE-3096894

PATIENT
  Sex: Male
  Weight: 95.340 kg

DRUGS (3)
  1. OCREVUS [Suspect]
     Active Substance: OCRELIZUMAB
     Indication: Multiple sclerosis
     Dosage: ONLY HAD HAD TWO HALF DOSES; INFUSE 300 MG A DAY AND THEN 300 MG ONCE A WEEK
     Route: 042
  2. OCREVUS [Suspect]
     Active Substance: OCRELIZUMAB
     Indication: Primary progressive multiple sclerosis
     Dosage: ONLY HAD HAD TWO HALF DOSES
     Route: 042
  3. ATIVAN [Suspect]
     Active Substance: LORAZEPAM
     Indication: Product used for unknown indication
     Route: 065

REACTIONS (11)
  - Pain [Unknown]
  - Gallbladder injury [Recovered/Resolved]
  - Pancreatic disorder [Not Recovered/Not Resolved]
  - Infection [Unknown]
  - Amnesia [Recovered/Resolved]
  - Increased viscosity of upper respiratory secretion [Unknown]
  - Weight decreased [Not Recovered/Not Resolved]
  - Swelling [Not Recovered/Not Resolved]
  - Hallucination [Unknown]
  - Anxiety [Unknown]
  - Gastrointestinal disorder [Unknown]

NARRATIVE: CASE EVENT DATE: 20210101
